FAERS Safety Report 11115221 (Version 1)
Quarter: 2015Q2

REPORT INFORMATION
  Report Type: Spontaneous
  Country: US (occurrence: None)
  Receive Date: 20150514
  Receipt Date: 20150514
  Transmission Date: 20150821
  Serious: Yes (Life-Threatening, Hospitalization)
  Sender: FDA-Public Use
  Company Number: None

PATIENT
  Age: 46 Year
  Sex: Female
  Weight: 57.15 kg

DRUGS (1)
  1. LIDOCAINE. [Suspect]
     Active Substance: LIDOCAINE
     Indication: HAIR TRANSPLANT

REACTIONS (6)
  - Asthenia [None]
  - Dizziness [None]
  - Seizure [None]
  - Toxicity to various agents [None]
  - Fatigue [None]
  - Coma [None]

NARRATIVE: CASE EVENT DATE: 20150501
